FAERS Safety Report 9620242 (Version 2)
Quarter: 2013Q4

REPORT INFORMATION
  Report Type: Spontaneous
  Country: US (occurrence: US)
  Receive Date: 20131014
  Receipt Date: 20131014
  Transmission Date: 20140711
  Serious: No
  Sender: FDA-Public Use
  Company Number: US-ALLERGAN-1310389US

PATIENT
  Age: 69 Year
  Sex: Male
  Weight: 70.3 kg

DRUGS (1)
  1. ALPHAGAN P [Suspect]
     Indication: GLAUCOMA
     Dosage: 1 DROP TO LEFT EYE TWICE DAILY
     Dates: start: 20120410, end: 20130410

REACTIONS (2)
  - Pruritus [Not Recovered/Not Resolved]
  - Rash papular [Unknown]
